FAERS Safety Report 5390857-2 (Version None)
Quarter: 2007Q3

REPORT INFORMATION
  Report Type: 
  Country: None (occurrence: None)
  Receive Date: 20070716
  Receipt Date: 20070703
  Transmission Date: 20080115
  Serious: Yes (Life-Threatening, Other)
  Sender: FDA-Public Use
  Company Number: GXKR2007FR04188

PATIENT
  Age: 42 Year
  Sex: Female
  Weight: 55 kg

DRUGS (1)
  1. PAROXETINE [Suspect]
     Indication: NICOTINE DEPENDENCE
     Dosage: 20 MG, ORAL
     Route: 048
     Dates: start: 20070504, end: 20070509

REACTIONS (6)
  - DEPRESSION [None]
  - FEAR [None]
  - PARAESTHESIA [None]
  - SUICIDAL IDEATION [None]
  - TRISMUS [None]
  - VOMITING [None]
